FAERS Safety Report 5404377-X (Version None)
Quarter: 2007Q3

REPORT INFORMATION
  Report Type: 
  Country: None (occurrence: None)
  Receive Date: 20070711
  Receipt Date: 20060911
  Transmission Date: 20080115
  Serious: Yes (Hospitalization, Other)
  Sender: FDA-Public Use
  Company Number: 239550

PATIENT
  Age: 63 Year
  Sex: Female
  Weight: 84.4 kg

DRUGS (14)
  1. ACTIVELLA [Suspect]
     Indication: MENOPAUSAL SYMPTOMS
     Dosage: 1MG/ 0.5 MG, ORAL
     Route: 048
     Dates: start: 20021214, end: 20030315
  2. PREMPRO [Suspect]
     Indication: MENOPAUSAL SYMPTOMS
     Dosage: 0.625 MG/ 2.5 MG,
     Dates: start: 19960801, end: 20020312
  3. PROVERA [Suspect]
     Indication: MENOPAUSAL SYMPTOMS
     Dosage: 2.5 MG
     Dates: start: 19900801, end: 19960801
  4. ESTRACE [Concomitant]
  5. AVANDIA [Concomitant]
  6. GLUCOTROL XL [Concomitant]
  7. LIPITOR [Concomitant]
  8. LISINOPRIL [Concomitant]
  9. GLUCOPHAGE /00082701/ (METFORMIN) [Concomitant]
  10. ACTOS /01460201/ (PIOGLITAZONE) [Concomitant]
  11. ZESTRIL [Concomitant]
  12. TOPROL-XL [Concomitant]
  13. NPH INSULIN (INSULIN INJECTION, ISOPHANE) [Concomitant]
  14. METFORMIN HCL [Concomitant]

REACTIONS (1)
  - BREAST CANCER [None]
